FAERS Safety Report 4893493-7 (Version None)
Quarter: 2006Q1

REPORT INFORMATION
  Report Type: 
  Country: None (occurrence: None)
  Receive Date: 20060127
  Receipt Date: 20051019
  Transmission Date: 20060701
  Serious: No
  Sender: FDA-Public Use
  Company Number: US-BRISTOL-MYERS SQUIBB COMPANY-13152012

PATIENT
  Sex: Female

DRUGS (1)
  1. KENALOG-10 [Suspect]

REACTIONS (4)
  - ALOPECIA [None]
  - CATARACT [None]
  - INJECTION SITE SWELLING [None]
  - SKIN ATROPHY [None]
